FAERS Safety Report 19082280 (Version 10)
Quarter: 2024Q3

REPORT INFORMATION
  Report Type: Spontaneous
  Country: US (occurrence: US)
  Receive Date: 20210401
  Receipt Date: 20240730
  Transmission Date: 20241016
  Serious: Yes (Other)
  Sender: BIOGEN
  Company Number: US-BIOGEN-2021BI00995955

PATIENT
  Sex: Female
  Weight: 126.21 kg

DRUGS (20)
  1. VUMERITY [Suspect]
     Active Substance: DIROXIMEL FUMARATE
     Indication: Multiple sclerosis
     Dosage: TOOK THIS DOSE FOR 7 DAYS
     Route: 050
     Dates: start: 20210312
  2. VUMERITY [Suspect]
     Active Substance: DIROXIMEL FUMARATE
     Dosage: STARTED THIS DOSE ON DAY 8
     Route: 050
     Dates: end: 20210408
  3. VUMERITY [Suspect]
     Active Substance: DIROXIMEL FUMARATE
     Route: 050
     Dates: start: 202103
  4. VUMERITY [Suspect]
     Active Substance: DIROXIMEL FUMARATE
     Dosage: 2 CAPSULES (462 MILLIGRAMS)
     Route: 050
  5. VUMERITY [Suspect]
     Active Substance: DIROXIMEL FUMARATE
     Dosage: MAINTENANCE DOSE
     Route: 050
     Dates: start: 20210312
  6. VUMERITY [Suspect]
     Active Substance: DIROXIMEL FUMARATE
     Route: 050
     Dates: start: 202102
  7. VUMERITY [Suspect]
     Active Substance: DIROXIMEL FUMARATE
     Route: 050
     Dates: start: 202102
  8. PFIZER-BIONTECH COVID-19 VACCINE [Suspect]
     Active Substance: TOZINAMERAN
     Indication: COVID-19 prophylaxis
     Route: 050
  9. VITAMIN D [Concomitant]
     Active Substance: VITAMIN D NOS
     Indication: Product used for unknown indication
     Route: 050
  10. BIOTIN [Concomitant]
     Active Substance: BIOTIN
     Indication: Product used for unknown indication
     Route: 050
  11. ZOLOFT [Concomitant]
     Active Substance: SERTRALINE HYDROCHLORIDE
     Indication: Product used for unknown indication
     Route: 050
  12. ALLEGRA [Concomitant]
     Active Substance: FEXOFENADINE HYDROCHLORIDE
     Indication: Hypersensitivity
     Route: 050
  13. VITAMIN D3 [Concomitant]
     Active Substance: CHOLECALCIFEROL
     Indication: Product used for unknown indication
     Route: 050
  14. HERBALS\TURMERIC [Concomitant]
     Active Substance: HERBALS\TURMERIC
     Indication: Product used for unknown indication
     Route: 050
  15. MELATONIN [Concomitant]
     Active Substance: MELATONIN
     Indication: Product used for unknown indication
     Route: 050
  16. VENTOLIN [Concomitant]
     Active Substance: ALBUTEROL SULFATE
     Indication: Product used for unknown indication
     Route: 050
  17. SINGULAIR [Concomitant]
     Active Substance: MONTELUKAST SODIUM
     Indication: Product used for unknown indication
     Route: 050
  18. GINGER [Concomitant]
     Active Substance: GINGER
     Indication: Product used for unknown indication
     Route: 050
  19. METHYLCOBALAMIN [Concomitant]
     Active Substance: METHYLCOBALAMIN
     Indication: Product used for unknown indication
     Route: 050
  20. PREGABALIN [Concomitant]
     Active Substance: PREGABALIN
     Indication: Product used for unknown indication
     Route: 050

REACTIONS (9)
  - Hypersensitivity [Recovered/Resolved]
  - Product dose omission in error [Unknown]
  - Abdominal discomfort [Recovered/Resolved]
  - Allergy to vaccine [Recovered/Resolved]
  - Visual impairment [Recovered/Resolved]
  - Flushing [Recovered/Resolved]
  - Abdominal pain upper [Recovered/Resolved]
  - Diarrhoea [Recovered/Resolved]
  - Gastrointestinal disorder [Recovered/Resolved]

NARRATIVE: CASE EVENT DATE: 20210101
